FAERS Safety Report 11221939 (Version 2)
Quarter: 2015Q3

REPORT INFORMATION
  Report Type: Spontaneous
  Country: US (occurrence: US)
  Receive Date: 20150626
  Receipt Date: 20150728
  Transmission Date: 20151125
  Serious: Yes (Other)
  Sender: FDA-Public Use
  Company Number: US-GLAXOSMITHKLINE-US2015GSK088103

PATIENT
  Age: 58 Year
  Sex: Female

DRUGS (2)
  1. VOTRIENT [Suspect]
     Active Substance: PAZOPANIB HYDROCHLORIDE
     Dosage: 800 MG, QD
     Route: 048
     Dates: start: 20140416
  2. VOTRIENT [Suspect]
     Active Substance: PAZOPANIB HYDROCHLORIDE
     Indication: RENAL CANCER
     Dosage: 200 MG, U
     Route: 048
     Dates: start: 20140416

REACTIONS (4)
  - Rectal haemorrhage [Unknown]
  - Increased tendency to bruise [Unknown]
  - Rash macular [Unknown]
  - Contusion [Unknown]

NARRATIVE: CASE EVENT DATE: 20150615
